FAERS Safety Report 20500523 (Version 1)
Quarter: 2022Q1

REPORT INFORMATION
  Report Type: Spontaneous
  Country: US (occurrence: US)
  Receive Date: 20220222
  Receipt Date: 20220222
  Transmission Date: 20220423
  Serious: No
  Sender: FDA-Public Use
  Company Number: US-SA-SAC20220214001159

PATIENT
  Sex: Female

DRUGS (23)
  1. AUBAGIO [Suspect]
     Active Substance: TERIFLUNOMIDE
     Indication: Relapsing-remitting multiple sclerosis
     Dosage: 1 DF, QD
     Route: 048
  2. MS CONTIN [Concomitant]
     Active Substance: MORPHINE SULFATE
  3. PREDNISONE [Concomitant]
     Active Substance: PREDNISONE
  4. BENADRYL ALLERGY [Concomitant]
     Active Substance: DIPHENHYDRAMINE HYDROCHLORIDE
  5. MONTELUKAST SODIUM [Concomitant]
     Active Substance: MONTELUKAST SODIUM
  6. XARELTO [Concomitant]
     Active Substance: RIVAROXABAN
  7. BACLOFEN [Concomitant]
     Active Substance: BACLOFEN
  8. BUSPIRONE [Concomitant]
     Active Substance: BUSPIRONE HYDROCHLORIDE
  9. CLOBETASOL [Concomitant]
     Active Substance: CLOBETASOL
  10. CLONAZEPAM [Concomitant]
     Active Substance: CLONAZEPAM
  11. DICYCLOMINE [Concomitant]
     Active Substance: DICYCLOMINE HYDROCHLORIDE
  12. DILTIAZEM [Concomitant]
     Active Substance: DILTIAZEM
  13. GABAPENTIN [Concomitant]
     Active Substance: GABAPENTIN
  14. LEVOFLOXACIN [Concomitant]
     Active Substance: LEVOFLOXACIN
  15. LOSARTAN POTASSIUM [Concomitant]
     Active Substance: LOSARTAN POTASSIUM
  16. METFORMIN [Concomitant]
     Active Substance: METFORMIN HYDROCHLORIDE
  17. ONDANSETRON [Concomitant]
     Active Substance: ONDANSETRON
  18. OXYCODONE/APAP [Concomitant]
     Active Substance: ACETAMINOPHEN\OXYCODONE HYDROCHLORIDE
  19. PANTOPRAZOLE [Concomitant]
     Active Substance: PANTOPRAZOLE
  20. SIMVASTATIN [Concomitant]
     Active Substance: SIMVASTATIN
  21. TIZANIDINE [Concomitant]
     Active Substance: TIZANIDINE
  22. VENTOLIN HFA [Concomitant]
     Active Substance: ALBUTEROL SULFATE
  23. ACETAMINOPHEN [Concomitant]
     Active Substance: ACETAMINOPHEN

REACTIONS (1)
  - Hepatic enzyme increased [Unknown]
